FAERS Safety Report 7407290-1 (Version None)
Quarter: 2011Q2

REPORT INFORMATION
  Report Type: 
  Country: None (occurrence: None)
  Receive Date: 20110411
  Receipt Date: 20110331
  Transmission Date: 20111010
  Serious: Yes (Hospitalization, Other)
  Sender: FDA-Public Use
  Company Number: PHHY2011AR27557

PATIENT
  Sex: Male

DRUGS (1)
  1. EXELON [Suspect]
     Indication: DEMENTIA
     Dosage: 1 DF, UNK
     Route: 048
     Dates: start: 20101014, end: 20101101

REACTIONS (4)
  - FEELING ABNORMAL [None]
  - VOMITING [None]
  - BEDRIDDEN [None]
  - PROSTATIC DISORDER [None]
